FAERS Safety Report 14313413 (Version 2)
Quarter: 2018Q4

REPORT INFORMATION
  Report Type: Report from Study
  Country: ES (occurrence: ES)
  Receive Date: 20171221
  Receipt Date: 20181227
  Transmission Date: 20190204
  Serious: Yes (Life-Threatening, Hospitalization)
  Sender: FDA-Public Use
  Company Number: ES-MYLANLABS-2017M1079666

PATIENT
  Age: 47 Year
  Sex: Male

DRUGS (6)
  1. VALPROATO [Interacting]
     Active Substance: VALPROATE SODIUM
     Indication: BIPOLAR DISORDER
     Dosage: 3.6 MG, TOTAL
     Route: 048
     Dates: start: 20160812, end: 20160812
  2. CLONAZEPAM. [Interacting]
     Active Substance: CLONAZEPAM
     Indication: BIPOLAR DISORDER
     Dosage: 22.5 MG, TOTAL
     Route: 048
     Dates: start: 20160812, end: 20160812
  3. ABILIFY [Interacting]
     Active Substance: ARIPIPRAZOLE
     Indication: BIPOLAR DISORDER
     Dosage: 30 MG, QD
     Route: 048
     Dates: start: 201208, end: 20160812
  4. QUETIAPINE. [Suspect]
     Active Substance: QUETIAPINE
     Indication: BIPOLAR DISORDER
     Dosage: 19 G, TOTAL
     Route: 048
     Dates: start: 20160812, end: 20160812
  5. ANTABUS [Interacting]
     Active Substance: DISULFIRAM
     Indication: ABSTAINS FROM ALCOHOL
     Dosage: 250 MG, QD
     Route: 048
     Dates: start: 201004, end: 20160812
  6. ESCITALOPRAM [Interacting]
     Active Substance: ESCITALOPRAM OXALATE
     Indication: BIPOLAR DISORDER
     Dosage: 30 MG, TOTAL
     Route: 048
     Dates: start: 20160812, end: 20160812

REACTIONS (3)
  - Labelled drug-drug interaction medication error [Recovered/Resolved]
  - Intentional overdose [Recovered/Resolved]
  - Depressed level of consciousness [Recovered/Resolved]

NARRATIVE: CASE EVENT DATE: 20160812
